FAERS Safety Report 10250630 (Version 1)
Quarter: 2014Q2

REPORT INFORMATION
  Report Type: Other
  Country: ES (occurrence: ES)
  Receive Date: 20140620
  Receipt Date: 20140620
  Transmission Date: 20141212
  Serious: Yes (Other)
  Sender: FDA-Public Use
  Company Number: ES-BRISTOL-MYERS SQUIBB COMPANY-21078290

PATIENT
  Sex: 0

DRUGS (1)
  1. AZTREONAM [Suspect]

REACTIONS (4)
  - Shock [Unknown]
  - Rash [Unknown]
  - Eosinophilia [Unknown]
  - Coombs test positive [Unknown]
